FAERS Safety Report 8512458-7 (Version None)
Quarter: 2012Q3

REPORT INFORMATION
  Report Type: 
  Country: None (occurrence: None)
  Receive Date: 20120716
  Receipt Date: 20120704
  Transmission Date: 20120928
  Serious: Yes (Death, Other)
  Sender: FDA-Public Use
  Company Number: JP-ACTELION-A-CH2012-68302

PATIENT
  Age: 14 Year
  Sex: Male

DRUGS (3)
  1. TRACLEER [Suspect]
     Indication: PULMONARY ARTERIAL HYPERTENSION
     Route: 048
  2. SILDENAFIL [Concomitant]
  3. BERAPROST [Concomitant]

REACTIONS (12)
  - ASPARTATE AMINOTRANSFERASE INCREASED [None]
  - EPSTEIN-BARR VIRUS INFECTION [None]
  - EPSTEIN-BARR VIRUS TEST POSITIVE [None]
  - RIGHT VENTRICULAR FAILURE [None]
  - INFECTION [None]
  - CORONARY ARTERY ANEURYSM [None]
  - HEPATIC FUNCTION ABNORMAL [None]
  - EXTRASYSTOLES [None]
  - ALANINE AMINOTRANSFERASE INCREASED [None]
  - TACHYCARDIA [None]
  - STEM CELL TRANSPLANT [None]
  - CONCOMITANT DISEASE PROGRESSION [None]
